FAERS Safety Report 8824543 (Version 1)
Quarter: 2012Q4

REPORT INFORMATION
  Report Type: 
  Country: US (occurrence: US)
  Receive Date: 20121004
  Receipt Date: 20121004
  Transmission Date: 20130627
  Serious: No
  Sender: FDA-Public Use
  Company Number: US-B.I. PHARMACEUTICALS,INC./RIDGEFIELD-2012-BP-23463BP

PATIENT
  Age: 77 None
  Sex: Female
  Weight: 95 kg

DRUGS (9)
  1. SPIRIVA [Suspect]
     Indication: LUNG NEOPLASM MALIGNANT
     Dosage: 18 mcg
     Route: 055
     Dates: start: 2010
  2. SPIRIVA [Suspect]
     Indication: LUNG LOBECTOMY
     Route: 048
     Dates: start: 20120925, end: 20120925
  3. LEVOTHYROXINE [Concomitant]
     Indication: HYPOTHYROIDISM
     Dosage: 0.112 mcg
     Route: 048
  4. PRAVASTATIN [Concomitant]
     Indication: BLOOD CHOLESTEROL INCREASED
     Dosage: 10 mg
     Route: 048
     Dates: start: 2012
  5. OMEPRAZOLE [Concomitant]
     Indication: HIATUS HERNIA
     Dosage: 20 mg
     Route: 048
     Dates: start: 2010
  6. MELOXICAM [Concomitant]
     Indication: ARTHRITIS
     Dosage: 7.5 mg
     Route: 048
  7. VITAMIN D [Concomitant]
     Route: 048
  8. TRIAMTERENE/HCTZ [Concomitant]
     Indication: HYPERTENSION
     Route: 048
  9. CHEMOTHERAPY [Concomitant]
     Indication: LUNG NEOPLASM MALIGNANT
     Dates: start: 2010

REACTIONS (2)
  - Muscular weakness [Not Recovered/Not Resolved]
  - Incorrect route of drug administration [Recovered/Resolved]
